FAERS Safety Report 25650898 (Version 1)
Quarter: 2025Q3

REPORT INFORMATION
  Report Type: Report from Study
  Country: CA (occurrence: CA)
  Receive Date: 20250806
  Receipt Date: 20250806
  Transmission Date: 20251020
  Serious: Yes (Other)
  Sender: TAKEDA
  Company Number: CA-TAKEDA-2022TUS038149

PATIENT
  Sex: Female

DRUGS (10)
  1. VEDOLIZUMAB [Suspect]
     Active Substance: VEDOLIZUMAB
     Indication: Colitis ulcerative
  2. VEDOLIZUMAB [Suspect]
     Active Substance: VEDOLIZUMAB
     Indication: Colitis ulcerative
  3. VEDOLIZUMAB [Suspect]
     Active Substance: VEDOLIZUMAB
  4. VEDOLIZUMAB [Suspect]
     Active Substance: VEDOLIZUMAB
  5. VEDOLIZUMAB [Suspect]
     Active Substance: VEDOLIZUMAB
  6. PENTASA [Suspect]
     Active Substance: MESALAMINE
     Indication: Product used for unknown indication
  7. AMOXICILLIN [Suspect]
     Active Substance: AMOXICILLIN
     Indication: Tooth impacted
  8. VITAMIN D [Concomitant]
     Active Substance: VITAMIN D NOS
  9. MESALAMINE [Concomitant]
     Active Substance: MESALAMINE
  10. PENTASA [Concomitant]
     Active Substance: MESALAMINE

REACTIONS (11)
  - Haematochezia [Recovering/Resolving]
  - Diarrhoea [Unknown]
  - Inflammation [Unknown]
  - Tooth impacted [Unknown]
  - Tooth infection [Unknown]
  - Frequent bowel movements [Unknown]
  - Injection site extravasation [Unknown]
  - Vomiting [Unknown]
  - Hypersensitivity [Unknown]
  - Injection site reaction [Recovered/Resolved]
  - Headache [Unknown]
